FAERS Safety Report 15201485 (Version 4)
Quarter: 2018Q4

REPORT INFORMATION
  Report Type: Spontaneous
  Country: DE (occurrence: DE)
  Receive Date: 20180726
  Receipt Date: 20181012
  Transmission Date: 20190204
  Serious: Yes (Hospitalization)
  Sender: FDA-Public Use
  Company Number: DE-AMGEN-DEUSP2018101188

PATIENT
  Sex: Male

DRUGS (14)
  1. PEGFILGRASTIM [Suspect]
     Active Substance: PEGFILGRASTIM
     Indication: B-CELL LYMPHOMA
     Dosage: 6 MG, QD
     Route: 058
     Dates: start: 20180714
  2. DOXORUBICINE [Suspect]
     Active Substance: DOXORUBICIN
     Indication: B-CELL LYMPHOMA
     Dosage: 50 MG, QD
     Route: 042
  3. DOXORUBICINE [Suspect]
     Active Substance: DOXORUBICIN
     Dosage: 88 MG, QD (50 MG/SQM AS PER PROTOCOL)
     Route: 042
     Dates: start: 20180711, end: 20180711
  4. PREDNISONE. [Suspect]
     Active Substance: PREDNISONE
     Indication: B-CELL LYMPHOMA
     Dosage: 100 MG, UNK (5X FOR 5 DAY100MG/D D1-5)
     Route: 048
  5. AMLODIPINE [Concomitant]
     Active Substance: AMLODIPINE BESYLATE
     Indication: HYPERTENSION
     Dosage: 10 MG, QD
     Route: 065
     Dates: start: 20180711
  6. CANDESARTAN. [Concomitant]
     Active Substance: CANDESARTAN
     Indication: CARDIAC FAILURE
     Dosage: 32 MG, QD
     Route: 048
  7. CYCLOPHOSPHAMIDE. [Suspect]
     Active Substance: CYCLOPHOSPHAMIDE
     Indication: B-CELL LYMPHOMA
     Dosage: 1477 MG UNK (750 MG/SQM)
     Route: 042
  8. RITUXIMAB. [Suspect]
     Active Substance: RITUXIMAB
     Indication: B-CELL LYMPHOMA
     Dosage: 75 MG, QD
     Route: 042
     Dates: start: 20180712, end: 20180712
  9. RITUXIMAB. [Suspect]
     Active Substance: RITUXIMAB
     Dosage: 798 MG, QD (375 MG/SQ AS PER PROTCOL)
     Route: 042
     Dates: start: 20180712, end: 20180712
  10. VINCRISTINE [Suspect]
     Active Substance: VINCRISTINE
     Indication: B-CELL LYMPHOMA
     Dosage: 94 MG, QD
     Route: 042
     Dates: start: 20180711, end: 20180711
  11. FLUCONAZOLE. [Concomitant]
     Active Substance: FLUCONAZOLE
     Indication: ANTIFUNGAL TREATMENT
     Dosage: 400 MG, QD
     Route: 048
     Dates: start: 20180711
  12. VINCRISTINE [Suspect]
     Active Substance: VINCRISTINE
     Dosage: 3 MG, QD [1.4 MG/SQM (MAX. 2MG ABSOLUTE)]
     Route: 042
     Dates: start: 20180711, end: 20180711
  13. AMPHOTERICIN B. [Concomitant]
     Active Substance: AMPHOTERICIN B
     Indication: INFECTION PROPHYLAXIS
     Dosage: 28 ML, QD, FOR 6 DAYS (1 TIMES A DAY(S) FOR 6 DAY(S))
     Route: 042
     Dates: start: 20180711, end: 20180716
  14. ASPIRIN. [Concomitant]
     Active Substance: ASPIRIN
     Indication: CORONARY ARTERY DISEASE
     Dosage: 100 MG, QD
     Route: 048

REACTIONS (5)
  - Chills [Unknown]
  - Pyrexia [Unknown]
  - Off label use [Unknown]
  - Syncope [Recovered/Resolved]
  - Epilepsy [Unknown]

NARRATIVE: CASE EVENT DATE: 20180714
